FAERS Safety Report 9539027 (Version 2)
Quarter: 2013Q3

REPORT INFORMATION
  Report Type: Spontaneous
  Country: US (occurrence: US)
  Receive Date: 20130920
  Receipt Date: 20130920
  Transmission Date: 20140515
  Serious: Yes (Other)
  Sender: FDA-Public Use
  Company Number: US-JNJFOC-20121101145

PATIENT
  Sex: Female
  Weight: 102.06 kg

DRUGS (15)
  1. STELARA [Suspect]
     Indication: PSORIASIS
     Route: 058
     Dates: start: 201204, end: 201205
  2. HUMIRA [Suspect]
     Indication: PSORIASIS
     Dosage: IN PRE-FILLED PEN, 2.8571 MG
     Route: 065
     Dates: start: 200902, end: 200902
  3. HUMIRA [Suspect]
     Indication: PSORIASIS
     Dosage: TWO YEARS
     Route: 065
     Dates: start: 200902, end: 2011
  4. PREMARIN [Concomitant]
     Indication: HORMONE REPLACEMENT THERAPY
     Route: 065
  5. SYNTHROID [Concomitant]
     Indication: THYROID CANCER
     Route: 065
  6. SYNTHROID [Concomitant]
     Indication: HYPOTHYROIDISM
     Route: 065
  7. DIOVAN [Concomitant]
     Indication: HYPERTENSION
     Route: 065
  8. METFORMIN [Concomitant]
     Indication: DIABETES MELLITUS
     Route: 065
  9. CELEXA [Concomitant]
     Indication: ANXIETY
     Route: 065
  10. VITAMIN D3 [Concomitant]
     Indication: VITAMIN SUPPLEMENTATION
     Route: 065
  11. MILK THISTLE [Concomitant]
     Indication: PRODUCT USED FOR UNKNOWN INDICATION
     Route: 065
  12. VIGRAN [Concomitant]
     Indication: VITAMIN SUPPLEMENTATION
     Route: 065
  13. RED YEAST RICE EXTRACT [Concomitant]
     Indication: NUTRITIONAL SUPPLEMENTATION
     Route: 065
  14. MAXALT [Concomitant]
     Indication: MIGRAINE
     Route: 065
  15. TOPICAL CREAMS [Concomitant]
     Indication: PSORIASIS
     Route: 061

REACTIONS (2)
  - Bladder prolapse [Recovered/Resolved]
  - Ventricular extrasystoles [Recovered/Resolved]
